FAERS Safety Report 20289419 (Version 1)
Quarter: 2022Q1

REPORT INFORMATION
  Report Type: Other
  Country: US (occurrence: None)
  Receive Date: 20220104
  Receipt Date: 20220104
  Transmission Date: 20220423
  Serious: Yes (Death)
  Sender: FDA-Public Use
  Company Number: US-ROCHE-2984991

PATIENT
  Age: 55 Year
  Sex: Male
  Weight: 83 kg

DRUGS (4)
  1. RITUXAN [Suspect]
     Active Substance: RITUXIMAB
     Indication: Chronic lymphocytic leukaemia
     Dosage: INFUSE 739MG INTRAVENOUSLY EVERY WEEK
     Route: 042
     Dates: start: 20190313, end: 20200108
  2. RITUXAN [Suspect]
     Active Substance: RITUXIMAB
     Route: 042
  3. GAZYVA [Suspect]
     Active Substance: OBINUTUZUMAB
     Indication: Chronic lymphocytic leukaemia
     Dosage: PATIENT NOT STARTED THERAPY AS ON 29/JUN/2021 ?ON DAY 1, 900MG ON DAY 2, 1000MG ON DAY 8 AND 15 FOR
     Route: 042
     Dates: start: 20210616, end: 20210906
  4. GAZYVA [Suspect]
     Active Substance: OBINUTUZUMAB
     Route: 042
     Dates: start: 20200606, end: 20201107

REACTIONS (1)
  - Death [Fatal]

NARRATIVE: CASE EVENT DATE: 20211001
